FAERS Safety Report 23973307 (Version 2)
Quarter: 2024Q3

REPORT INFORMATION
  Report Type: Spontaneous
  Country: US (occurrence: US)
  Receive Date: 20240613
  Receipt Date: 20240806
  Transmission Date: 20241016
  Serious: Yes (Other)
  Sender: APELLIS PHARMACEUTICALS
  Company Number: US-APELLIS-2024-APL-0000113

PATIENT

DRUGS (2)
  1. SYFOVRE [Suspect]
     Active Substance: PEGCETACOPLAN
     Indication: Dry age-related macular degeneration
     Dosage: 1 CC INJECTION (15 MG) OD INTRAVITREAL INJECTION
     Route: 031
     Dates: start: 20240425
  2. SYFOVRE [Suspect]
     Active Substance: PEGCETACOPLAN
     Dosage: 8 MG WAS GIVEN OD
     Route: 031
     Dates: start: 20240625

REACTIONS (2)
  - Paracentesis eye [Recovered/Resolved]
  - Blindness transient [Recovered/Resolved]

NARRATIVE: CASE EVENT DATE: 20240425
